FAERS Safety Report 8173777-X (Version None)
Quarter: 2012Q1

REPORT INFORMATION
  Report Type: 
  Country: None (occurrence: None)
  Receive Date: 20120224
  Receipt Date: 20120214
  Transmission Date: 20120608
  Serious: Yes (Hospitalization, Other)
  Sender: FDA-Public Use
  Company Number: 2012020176

PATIENT
  Age: 40 Year
  Sex: Female

DRUGS (1)
  1. ZOLPIDEM [Suspect]
     Indication: INSOMNIA
     Dosage: UP TO 1000 MG PER DAY
     Dates: start: 20060101, end: 20090101

REACTIONS (12)
  - PALPITATIONS [None]
  - DRUG WITHDRAWAL CONVULSIONS [None]
  - CONVULSION [None]
  - MUSCLE SPASTICITY [None]
  - FEELING JITTERY [None]
  - BALANCE DISORDER [None]
  - NAUSEA [None]
  - TREMOR [None]
  - HYPERHIDROSIS [None]
  - ATAXIA [None]
  - LOSS OF CONSCIOUSNESS [None]
  - DYSARTHRIA [None]
